FAERS Safety Report 4708070-8 (Version None)
Quarter: 2005Q3

REPORT INFORMATION
  Report Type: 
  Country: None (occurrence: None)
  Receive Date: 20050707
  Receipt Date: 20050620
  Transmission Date: 20060218
  Serious: Yes (Hospitalization)
  Sender: FDA-Public Use
  Company Number: FR-BOEHRINGER INGELHEIM PHARMACEUTICALS, INC.-2005-BP-11232YA

PATIENT
  Age: 84 Year
  Sex: Male

DRUGS (6)
  1. TAMSULOSIN HCL [Suspect]
     Route: 048
  2. PREVISCAN [Suspect]
     Route: 048
     Dates: end: 20050516
  3. DOLIPRANE [Suspect]
     Route: 048
  4. LASIX [Suspect]
     Route: 048
  5. NOVONORM [Suspect]
     Route: 048
  6. MACROGOL [Concomitant]
     Dosage: 2 DF
     Route: 048

REACTIONS (2)
  - DRUG INTERACTION [None]
  - PROTHROMBIN TIME SHORTENED [None]
